FAERS Safety Report 13943980 (Version 1)
Quarter: 2017Q3

REPORT INFORMATION
  Report Type: Spontaneous
  Country: US (occurrence: US)
  Receive Date: 20170907
  Receipt Date: 20170907
  Transmission Date: 20171128
  Serious: Yes (Other)
  Sender: FDA-Public Use
  Company Number: US-ROCHE-1468763

PATIENT
  Sex: Female

DRUGS (1)
  1. RITUXAN [Suspect]
     Active Substance: RITUXIMAB
     Indication: RHEUMATOID ARTHRITIS
     Dosage: 1000 MG DOSES WITH 2 WKS APART FOR INITIAL THERAPY
     Route: 065

REACTIONS (2)
  - Myocardial infarction [Recovered/Resolved]
  - Herpes zoster [Unknown]
